FAERS Safety Report 9244630 (Version 3)
Quarter: 2013Q4

REPORT INFORMATION
  Report Type: Report from Study
  Country: CA (occurrence: CA)
  Receive Date: 20130422
  Receipt Date: 20131003
  Transmission Date: 20140711
  Serious: Yes (Death)
  Sender: FDA-Public Use
  Company Number: CA-JNJFOC-20130408156

PATIENT
  Age: 64 Year
  Sex: Male

DRUGS (6)
  1. SIMPONI [Suspect]
     Indication: PSORIATIC ARTHROPATHY
     Route: 058
     Dates: start: 200911, end: 201103
  2. PREDNISONE [Concomitant]
     Route: 065
     Dates: start: 1998
  3. CALCIUM WITH VITAMIN D [Concomitant]
     Route: 065
     Dates: start: 1998
  4. METHOTREXATE [Concomitant]
     Route: 065
     Dates: start: 1998
  5. FOLIC ACID [Concomitant]
     Route: 065
     Dates: start: 1998
  6. ARAVA [Concomitant]
     Route: 065
     Dates: start: 2004

REACTIONS (2)
  - Neoplasm malignant [Fatal]
  - Metastases to liver [Unknown]
